FAERS Safety Report 7215943-3 (Version None)
Quarter: 2011Q1

REPORT INFORMATION
  Report Type: 
  Country: None (occurrence: None)
  Receive Date: 20110104
  Receipt Date: 20110104
  Transmission Date: 20110831
  Serious: Yes (Other)
  Sender: FDA-Public Use
  Company Number: None

PATIENT
  Age: 56 Year
  Sex: Female
  Weight: 81.6475 kg

DRUGS (2)
  1. DILAUDID [Suspect]
     Indication: LUMBAR VERTEBRAL FRACTURE
     Dosage: 1-2MG PRN Q4H IV
     Route: 042
     Dates: start: 20101229, end: 20101230
  2. DILAUDID [Suspect]
     Indication: FALL
     Dosage: 1-2MG PRN Q4H IV
     Route: 042
     Dates: start: 20101229, end: 20101230

REACTIONS (5)
  - SYNCOPE [None]
  - LETHARGY [None]
  - NAUSEA [None]
  - APNOEIC ATTACK [None]
  - VOMITING [None]
